FAERS Safety Report 11985641 (Version 1)
Quarter: 2016Q1

REPORT INFORMATION
  Report Type: Report from Study
  Country: US (occurrence: US)
  Receive Date: 20160201
  Receipt Date: 20160201
  Transmission Date: 20160526
  Serious: Yes (Hospitalization, Other)
  Sender: FDA-Public Use
  Company Number: US-GILEAD-2016-0191823

PATIENT
  Age: 42 Year
  Sex: Female

DRUGS (1)
  1. AMBRISENTAN [Suspect]
     Active Substance: AMBRISENTAN
     Indication: PRODUCT USED FOR UNKNOWN INDICATION
     Dosage: 10 MG, QD
     Route: 065
     Dates: start: 20111026

REACTIONS (6)
  - Dysphonia [Recovered/Resolved]
  - Product difficult to swallow [Recovered/Resolved]
  - Gastrooesophageal reflux disease [Unknown]
  - Pneumonia [Unknown]
  - Oral candidiasis [Unknown]
  - Dysphagia [Unknown]
